FAERS Safety Report 5122747-4 (Version None)
Quarter: 2006Q4

REPORT INFORMATION
  Report Type: 
  Country: None (occurrence: None)
  Receive Date: 20061005
  Receipt Date: 20060918
  Transmission Date: 20070319
  Serious: No
  Sender: FDA-Public Use
  Company Number: US200609004163

PATIENT
  Age: 51 Year
  Sex: Male

DRUGS (1)
  1. CIALIS [Suspect]
     Indication: ERECTILE DYSFUNCTION
     Dosage: 20 MG

REACTIONS (8)
  - DIZZINESS [None]
  - HEADACHE [None]
  - MYALGIA [None]
  - PARAESTHESIA [None]
  - SINUS HEADACHE [None]
  - STOMACH DISCOMFORT [None]
  - VISION BLURRED [None]
  - VISUAL DISTURBANCE [None]
